FAERS Safety Report 17075955 (Version 6)
Quarter: 2020Q4

REPORT INFORMATION
  Report Type: Spontaneous
  Country: US (occurrence: US)
  Receive Date: 20191126
  Receipt Date: 20201119
  Transmission Date: 20210113
  Serious: Yes (Hospitalization, Other)
  Sender: FDA-Public Use
  Company Number: US-GILEAD-2019-0439498

PATIENT
  Age: 55 Year
  Sex: Male
  Weight: 70.3 kg

DRUGS (89)
  1. NALOXONE [Concomitant]
     Active Substance: NALOXONE
  2. BUPROPION HYDROCHLORIDE XL [Concomitant]
     Active Substance: BUPROPION HYDROCHLORIDE
  3. BUPRENORPHINE. [Concomitant]
     Active Substance: BUPRENORPHINE
  4. PRAVASTATIN SODIUM. [Concomitant]
     Active Substance: PRAVASTATIN SODIUM
  5. NORTRIPTYLINE HCL [Concomitant]
     Active Substance: NORTRIPTYLINE HYDROCHLORIDE
  6. HYDRALAZINE [Concomitant]
     Active Substance: HYDRALAZINE HYDROCHLORIDE
  7. LOVAZA [Concomitant]
     Active Substance: OMEGA-3-ACID ETHYL ESTERS
  8. AMLODIPINE BESYLATE. [Concomitant]
     Active Substance: AMLODIPINE BESYLATE
  9. FLUVIRIN [INFLUENZA VACCINE INACT SAG 3V] [Concomitant]
     Dosage: UNK
     Dates: start: 20131017
  10. FLUVIRIN [INFLUENZA VACCINE INACT SAG 3V] [Concomitant]
     Dosage: UNK
     Dates: start: 20141108
  11. LASIX [Concomitant]
     Active Substance: FUROSEMIDE
  12. EMTRIVA [Concomitant]
     Active Substance: EMTRICITABINE
  13. VIDEX [Concomitant]
     Active Substance: DIDANOSINE
  14. ZIAGEN [Concomitant]
     Active Substance: ABACAVIR SULFATE
  15. VITEKTA [Concomitant]
     Active Substance: ELVITEGRAVIR
  16. COMPLERA [Suspect]
     Active Substance: EMTRICITABINE\RILPIVIRINE HYDROCHLORIDE\TENOFOVIR DISOPROXIL FUMARATE
     Indication: HIV INFECTION
     Dosage: UNK
     Route: 048
     Dates: start: 201307
  17. NORCO [Concomitant]
     Active Substance: ACETAMINOPHEN\HYDROCODONE BITARTRATE
  18. TRIAMTERENE AND HYDROCHLOROTHIAZIDE [Concomitant]
     Active Substance: HYDROCHLOROTHIAZIDE\TRIAMTERENE
  19. PRISTIQ EXTENDED-RELEASE [Concomitant]
     Active Substance: DESVENLAFAXINE SUCCINATE
  20. SUPRAX [Concomitant]
     Active Substance: CEFIXIME
  21. ALLOPURINOL. [Concomitant]
     Active Substance: ALLOPURINOL
  22. DIPHENHYDRAMINE;HYDROCORTISONE;LIDOCAINE;NYSTATIN;TETRACYCLINE [Concomitant]
  23. AMITRIPTYLINE [Concomitant]
     Active Substance: AMITRIPTYLINE
  24. MUPIROCIN. [Concomitant]
     Active Substance: MUPIROCIN
  25. MOMETASONE FUROATE. [Concomitant]
     Active Substance: MOMETASONE FUROATE
  26. VENLAFAXINE HCL [Concomitant]
     Active Substance: VENLAFAXINE HYDROCHLORIDE
  27. TRINTELLIX [Concomitant]
     Active Substance: VORTIOXETINE HYDROBROMIDE
  28. METHYLPREDNISOLONE. [Concomitant]
     Active Substance: METHYLPREDNISOLONE
  29. DIPHENOXYLATE HYDROCHLORIDE AND ATROPINE SULFATE [Concomitant]
     Active Substance: ATROPINE SULFATE\DIPHENOXYLATE HYDROCHLORIDE
  30. ABACAVIR. [Concomitant]
     Active Substance: ABACAVIR
  31. DOXYCYCLINE HYCLATE. [Concomitant]
     Active Substance: DOXYCYCLINE HYCLATE
  32. PROMETHAZINE [Concomitant]
     Active Substance: PROMETHAZINE HYDROCHLORIDE
  33. LEVOFLOXACIN. [Concomitant]
     Active Substance: LEVOFLOXACIN
  34. TOPIRAMATE. [Concomitant]
     Active Substance: TOPIRAMATE
  35. VIAGRA [Concomitant]
     Active Substance: SILDENAFIL CITRATE
  36. PROBIOTICS NOS [Concomitant]
     Active Substance: PROBIOTICS NOS
  37. TRUVADA [Concomitant]
     Active Substance: EMTRICITABINE\TENOFOVIR DISOPROXIL FUMARATE
  38. VIREAD [Concomitant]
     Active Substance: TENOFOVIR DISOPROXIL FUMARATE
  39. NORDITROPIN [Concomitant]
     Active Substance: SOMATROPIN
  40. TRANSDERM SCOP [Concomitant]
     Active Substance: SCOPOLAMINE
  41. LIDOCAINE;PRILOCAINE [Concomitant]
  42. FLUTICASONE PROPIONATE. [Concomitant]
     Active Substance: FLUTICASONE PROPIONATE
  43. TRIUMEQ [Concomitant]
     Active Substance: ABACAVIR SULFATE\DOLUTEGRAVIR SODIUM\LAMIVUDINE
  44. INTELENCE [Concomitant]
     Active Substance: ETRAVIRINE
  45. OXYCONTIN [Concomitant]
     Active Substance: OXYCODONE HYDROCHLORIDE
  46. ANTIPYRINE;BENZOCAINE [Concomitant]
  47. ACETAMINOPHEN. [Concomitant]
     Active Substance: ACETAMINOPHEN
  48. INDINAVIR [Concomitant]
     Active Substance: INDINAVIR
  49. COMBIVIR [Concomitant]
     Active Substance: LAMIVUDINE\ZIDOVUDINE
  50. AMMONIUM LACTATE. [Concomitant]
     Active Substance: AMMONIUM LACTATE
  51. CEPHALEXIN [CEFALEXIN] [Concomitant]
     Active Substance: CEPHALEXIN
  52. IBUPROFEN. [Concomitant]
     Active Substance: IBUPROFEN
  53. NUVIGIL [Concomitant]
     Active Substance: ARMODAFINIL
  54. VIIBRYD [Concomitant]
     Active Substance: VILAZODONE HYDROCHLORIDE
  55. ASPIRIN [ACETYLSALICYLIC ACID] [Concomitant]
     Active Substance: ASPIRIN
  56. CRIXIVAN [Concomitant]
     Active Substance: INDINAVIR SULFATE
  57. SUSTIVA [Concomitant]
     Active Substance: EFAVIRENZ
  58. VIRACEPT [Concomitant]
     Active Substance: NELFINAVIR MESYLATE
  59. GENVOYA [Concomitant]
     Active Substance: COBICISTAT\ELVITEGRAVIR\EMTRICITABINE\TENOFOVIR ALAFENAMIDE FUMARATE
     Dosage: 1 DOSAGE FORM, QD
     Route: 048
     Dates: start: 201602, end: 2017
  60. EVZIO [Concomitant]
     Active Substance: NALOXONE HYDROCHLORIDE
  61. ABILIFY [Concomitant]
     Active Substance: ARIPIPRAZOLE
  62. METHADONE HCL [Concomitant]
     Active Substance: METHADONE HYDROCHLORIDE
  63. ESCITALOPRAM [Concomitant]
     Active Substance: ESCITALOPRAM OXALATE
  64. CICLOPIROX. [Concomitant]
     Active Substance: CICLOPIROX
  65. TRICOR [Concomitant]
     Active Substance: FENOFIBRATE
  66. FENTANYL. [Concomitant]
     Active Substance: FENTANYL
  67. BACTRIM [Concomitant]
     Active Substance: SULFAMETHOXAZOLE\TRIMETHOPRIM
  68. PANTOPRAZOLE [Concomitant]
     Active Substance: PANTOPRAZOLE
  69. RANITIDINE. [Concomitant]
     Active Substance: RANITIDINE
  70. STRIBILD [Suspect]
     Active Substance: COBICISTAT\ELVITEGRAVIR\EMTRICITABINE\TENOFOVIR DISOPROXIL FUMARATE
     Indication: HIV INFECTION
     Dosage: UNK
     Route: 048
     Dates: start: 20130612, end: 20130719
  71. MOVIPREP [Concomitant]
     Active Substance: ASCORBIC ACID\POLYETHYLENE GLYCOL 3350\POTASSIUM CHLORIDE\SODIUM ASCORBATE\SODIUM CHLORIDE\SODIUM SULFATE
  72. SULFAMETHOXAZOLE;TRIMETHOPRIM [Concomitant]
     Active Substance: SULFAMETHOXAZOLE\TRIMETHOPRIM
  73. CHANTIX [Concomitant]
     Active Substance: VARENICLINE TARTRATE
  74. RENVELA [Concomitant]
     Active Substance: SEVELAMER CARBONATE
  75. PANTOPRAZOLE SODIUM. [Concomitant]
     Active Substance: PANTOPRAZOLE SODIUM
  76. CIPRODEX [Concomitant]
     Active Substance: CIPROFLOXACIN HYDROCHLORIDE\DEXAMETHASONE
  77. ACYCLOVIR [ACICLOVIR] [Concomitant]
     Active Substance: ACYCLOVIR
  78. EPIVIR [Concomitant]
     Active Substance: LAMIVUDINE
  79. JULUCA [Concomitant]
     Active Substance: DOLUTEGRAVIR SODIUM\RILPIVIRINE HYDROCHLORIDE
  80. RETROVIR [Concomitant]
     Active Substance: ZIDOVUDINE
  81. VIRAMUNE [Concomitant]
     Active Substance: NEVIRAPINE
  82. BACLOFEN. [Concomitant]
     Active Substance: BACLOFEN
  83. REXULTI [Concomitant]
     Active Substance: BREXPIPRAZOLE
  84. HYDROMORPHONE [Concomitant]
     Active Substance: HYDROMORPHONE
  85. ANDROGEL [Concomitant]
     Active Substance: TESTOSTERONE
  86. FAMOTIDINE. [Concomitant]
     Active Substance: FAMOTIDINE
  87. EPZICOM [Concomitant]
     Active Substance: ABACAVIR SULFATE\LAMIVUDINE
     Indication: HIV INFECTION
     Dosage: UNK
     Dates: end: 2013
  88. DEXLANSOPRAZOLE [Concomitant]
     Active Substance: DEXLANSOPRAZOLE
  89. ZERIT [Concomitant]
     Active Substance: STAVUDINE

REACTIONS (14)
  - Antisocial behaviour [Recovered/Resolved]
  - Economic problem [Unknown]
  - Foot fracture [Unknown]
  - Renal tubular necrosis [Unknown]
  - Bone density decreased [Unknown]
  - Anxiety [Recovered/Resolved]
  - Chronic kidney disease [Not Recovered/Not Resolved]
  - Acute kidney injury [Not Recovered/Not Resolved]
  - Depression [Recovered/Resolved]
  - Renal failure [Unknown]
  - Anhedonia [Unknown]
  - Osteoporosis [Not Recovered/Not Resolved]
  - Pain [Unknown]
  - Emotional distress [Unknown]

NARRATIVE: CASE EVENT DATE: 2013
